FAERS Safety Report 13142988 (Version 1)
Quarter: 2017Q1

REPORT INFORMATION
  Report Type: Spontaneous
  Country: US (occurrence: US)
  Receive Date: 20170123
  Receipt Date: 20170123
  Transmission Date: 20170428
  Serious: Yes (Death)
  Sender: FDA-Public Use
  Company Number: None

PATIENT
  Age: 23 Year
  Sex: Male

DRUGS (14)
  1. GENGRAF [Suspect]
     Active Substance: CYCLOSPORINE
     Indication: MYELODYSPLASTIC SYNDROME
     Route: 048
     Dates: end: 201701
  2. METOCLOPRAM [Concomitant]
     Active Substance: METOCLOPRAMIDE
  3. HYDROMORPHON [Concomitant]
     Active Substance: HYDROMORPHONE
  4. ATOVAQUONE. [Concomitant]
     Active Substance: ATOVAQUONE
  5. AMLODIPINE [Concomitant]
     Active Substance: AMLODIPINE BESYLATE
  6. PREDNISONE. [Concomitant]
     Active Substance: PREDNISONE
  7. ATIVAN [Concomitant]
     Active Substance: LORAZEPAM
  8. VORICONAZOLE. [Suspect]
     Active Substance: VORICONAZOLE
  9. BUDESONIDE. [Concomitant]
     Active Substance: BUDESONIDE
  10. PRILOSEC [Concomitant]
     Active Substance: OMEPRAZOLE MAGNESIUM
  11. VITAMIN D3 [Concomitant]
     Active Substance: CHOLECALCIFEROL
  12. URSODIOL. [Concomitant]
     Active Substance: URSODIOL
  13. GENGRAF [Suspect]
     Active Substance: CYCLOSPORINE
     Indication: MYELODYSPLASTIC SYNDROME
     Route: 048
     Dates: end: 201701
  14. BECLOMETHASO POW [Concomitant]

REACTIONS (3)
  - Transplant rejection [None]
  - Organ failure [None]
  - Graft versus host disease [None]

NARRATIVE: CASE EVENT DATE: 20170115
